FAERS Safety Report 8901947 (Version 1)
Quarter: 2012Q4

REPORT INFORMATION
  Report Type: Spontaneous
  Country: US (occurrence: None)
  Receive Date: 20121109
  Receipt Date: 20121109
  Transmission Date: 20130627
  Serious: Yes (Life-Threatening, Hospitalization)
  Sender: FDA-Public Use
  Company Number: None

PATIENT
  Age: 79 Year
  Sex: Female
  Weight: 61.24 kg

DRUGS (1)
  1. PRADAXA [Suspect]
     Indication: AFIB
     Route: 048
     Dates: start: 20111013, end: 201201

REACTIONS (1)
  - Epistaxis [None]
